FAERS Safety Report 14557709 (Version 2)
Quarter: 2018Q1

REPORT INFORMATION
  Report Type: Spontaneous
  Country: IT (occurrence: IT)
  Receive Date: 20180221
  Receipt Date: 20180301
  Transmission Date: 20180509
  Serious: Yes (Hospitalization)
  Sender: FDA-Public Use
  Company Number: IT-ASTRAZENECA-2017SE41193

PATIENT
  Age: 30776 Day
  Sex: Male

DRUGS (2)
  1. ASPIRINA [Interacting]
     Active Substance: ASPIRIN
     Route: 048
  2. BRILIQUE [Suspect]
     Active Substance: TICAGRELOR
     Route: 048

REACTIONS (2)
  - Cerebral haemorrhage [Unknown]
  - Drug interaction [Unknown]

NARRATIVE: CASE EVENT DATE: 20160913
